FAERS Safety Report 4415663-4 (Version None)
Quarter: 2004Q2

REPORT INFORMATION
  Report Type: 
  Country: None (occurrence: None)
  Receive Date: 20040628
  Receipt Date: 20031230
  Transmission Date: 20050107
  Serious: Yes (Death)
  Sender: FDA-Public Use
  Company Number: 355115

PATIENT
  Age: 48 Year
  Sex: Male

DRUGS (2)
  1. CELLCEPT [Suspect]
     Indication: HEART TRANSPLANT
     Dosage: ORAL
     Route: 048
     Dates: start: 20030715, end: 20031215
  2. CELLCEPT [Suspect]
     Indication: PROPHYLAXIS AGAINST TRANSPLANT REJECTION
     Dosage: ORAL
     Route: 048
     Dates: start: 20030715, end: 20031215

REACTIONS (3)
  - CARDIAC FAILURE [None]
  - HEART TRANSPLANT REJECTION [None]
  - TREATMENT NONCOMPLIANCE [None]
